FAERS Safety Report 6499994-2 (Version None)
Quarter: 2009Q4

REPORT INFORMATION
  Report Type: 
  Country: None (occurrence: None)
  Receive Date: 20091216
  Receipt Date: 20091013
  Transmission Date: 20100525
  Serious: Yes (Other)
  Sender: FDA-Public Use
  Company Number: A0811598A

PATIENT
  Age: 41 Year
  Sex: Female

DRUGS (2)
  1. LAMICTAL [Suspect]
     Dosage: 100MG PER DAY
     Route: 048
     Dates: start: 20090101, end: 20090101
  2. KEPPRA [Concomitant]

REACTIONS (3)
  - PRURITUS [None]
  - RASH [None]
  - SUICIDAL IDEATION [None]
